FAERS Safety Report 4467312-7 (Version None)
Quarter: 2004Q4

REPORT INFORMATION
  Report Type: 
  Country: None (occurrence: None)
  Receive Date: 20041006
  Receipt Date: 20040929
  Transmission Date: 20050328
  Serious: Yes (Death, Congenital Anomaly)
  Sender: FDA-Public Use
  Company Number: FR-GLAXOSMITHKLINE-B0347143B

PATIENT
  Sex: Female
  Weight: 1.2 kg

DRUGS (1)
  1. ZYBAN [Suspect]
     Dosage: 150MG PER DAY
     Dates: start: 20031026, end: 20031125

REACTIONS (6)
  - CHROMOSOME ABNORMALITY [None]
  - CONGENITAL HAND MALFORMATION [None]
  - DIAPHRAGMATIC HERNIA [None]
  - FOETAL GROWTH RETARDATION [None]
  - FOETAL MALFORMATION [None]
  - GASTROINTESTINAL DISORDER [None]
